FAERS Safety Report 14392613 (Version 5)
Quarter: 2019Q1

REPORT INFORMATION
  Report Type: Report from Study
  Country: FR (occurrence: FR)
  Receive Date: 20180116
  Receipt Date: 20190111
  Transmission Date: 20190417
  Serious: Yes (Hospitalization)
  Sender: FDA-Public Use
  Company Number: FR-ASTRAZENECA-2018SE02656

PATIENT
  Age: 68 Year
  Sex: Female

DRUGS (30)
  1. ACALABRUTINIB. [Suspect]
     Active Substance: ACALABRUTINIB
     Indication: MANTLE CELL LYMPHOMA
     Route: 048
     Dates: start: 20180105, end: 20180105
  2. ALLOPURINOL. [Concomitant]
     Active Substance: ALLOPURINOL
     Indication: PROPHYLACTIC CHEMOTHERAPY
     Route: 048
     Dates: start: 20171206
  3. HYDROXYZINE [Concomitant]
     Active Substance: HYDROXYZINE HYDROCHLORIDE
     Indication: ANXIETY
     Route: 048
     Dates: start: 20171220, end: 20171228
  4. DERMOVAL [Concomitant]
     Indication: TOXIC SKIN ERUPTION
     Dosage: 1 APPLICATION, AS NEEDED
     Route: 062
     Dates: start: 20171222, end: 20171228
  5. RITUXIMAB. [Suspect]
     Active Substance: RITUXIMAB
     Indication: MANTLE CELL LYMPHOMA
     Dosage: 610.0MG ONCE/SINGLE ADMINISTRATION
     Route: 042
     Dates: start: 20180103, end: 20180103
  6. BETAMETHASONE. [Concomitant]
     Active Substance: BETAMETHASONE
     Indication: TOXIC SKIN ERUPTION
     Dosage: 1 APPLICATION, ONCE DAILY
     Route: 062
     Dates: start: 20171220
  7. TRAMADOL. [Concomitant]
     Active Substance: TRAMADOL
     Indication: TOXIC SKIN ERUPTION
     Route: 048
     Dates: start: 20171221
  8. CLOBETASOL [Concomitant]
     Active Substance: CLOBETASOL
     Indication: TOXIC SKIN ERUPTION
     Dosage: 2 APPLICATION, ONCE DAILY
     Route: 062
     Dates: start: 20171222
  9. ACALABRUTINIB. [Suspect]
     Active Substance: ACALABRUTINIB
     Indication: MANTLE CELL LYMPHOMA
     Route: 048
     Dates: start: 20171206, end: 20171220
  10. BENDAMUSTINE [Suspect]
     Active Substance: BENDAMUSTINE
     Indication: MANTLE CELL LYMPHOMA
     Dosage: 145.0MG ONCE/SINGLE ADMINISTRATION
     Route: 042
     Dates: start: 20171207, end: 20171207
  11. BENDAMUSTINE [Suspect]
     Active Substance: BENDAMUSTINE
     Indication: MANTLE CELL LYMPHOMA
     Dosage: 145.0MG ONCE/SINGLE ADMINISTRATION
     Route: 042
     Dates: start: 20180104, end: 20180104
  12. ACETYLSALICYLATE LYSINE [Concomitant]
     Active Substance: ASPIRIN DL-LYSINE
     Indication: MIGRAINE
     Route: 048
  13. CALCIUM FOLINATE [Concomitant]
     Active Substance: LEUCOVORIN CALCIUM
     Indication: PROPHYLAXIS
     Route: 048
     Dates: start: 20171210
  14. CETIRIZINE [Concomitant]
     Active Substance: CETIRIZINE HYDROCHLORIDE
     Indication: TOXIC SKIN ERUPTION
     Route: 048
     Dates: start: 20180106
  15. TINZAPARIN [Concomitant]
     Active Substance: TINZAPARIN
     Indication: PHLEBITIS
     Route: 042
     Dates: start: 20171226, end: 20171228
  16. METOCLOPRAMIDE. [Concomitant]
     Active Substance: METOCLOPRAMIDE
     Indication: PROPHYLAXIS
     Route: 048
     Dates: start: 20180104, end: 20180105
  17. BENDAMUSTINE [Suspect]
     Active Substance: BENDAMUSTINE
     Indication: MANTLE CELL LYMPHOMA
     Dosage: 145.0MG ONCE/SINGLE ADMINISTRATION
     Route: 042
     Dates: start: 20180105, end: 20180105
  18. AMLODIPINE [Concomitant]
     Active Substance: AMLODIPINE BESYLATE
     Indication: PAIN
     Route: 048
     Dates: start: 20171208
  19. DOMPERIDONE [Concomitant]
     Active Substance: DOMPERIDONE
     Indication: VOMITING
     Route: 048
     Dates: start: 20171226, end: 20171226
  20. AMOXICILLINE [Concomitant]
     Active Substance: AMOXICILLIN
     Indication: PROPHYLAXIS
     Route: 048
     Dates: start: 20171208
  21. SODIUM ALGINATE [Concomitant]
     Active Substance: SODIUM ALGINATE
     Indication: ABDOMINAL PAIN UPPER
     Dosage: 1 SACHET, AS NEEDED
     Route: 048
     Dates: start: 20171226, end: 20180104
  22. BENDAMUSTINE [Suspect]
     Active Substance: BENDAMUSTINE
     Indication: MANTLE CELL LYMPHOMA
     Dosage: 145.0MG ONCE/SINGLE ADMINISTRATION
     Route: 042
     Dates: start: 20171206, end: 20171206
  23. DEXERYL [Concomitant]
     Indication: TOXIC SKIN ERUPTION
     Dosage: 1 APPLICATION, AS NEEDED
     Route: 062
     Dates: start: 20171222, end: 20171228
  24. PREDNISONE. [Concomitant]
     Active Substance: PREDNISONE
     Indication: RAYNAUD^S PHENOMENON
     Route: 048
     Dates: start: 201307
  25. CETIRIZINE [Concomitant]
     Active Substance: CETIRIZINE HYDROCHLORIDE
     Indication: TOXIC SKIN ERUPTION
     Route: 048
     Dates: start: 20171222, end: 20171228
  26. RITUXIMAB. [Suspect]
     Active Substance: RITUXIMAB
     Indication: MANTLE CELL LYMPHOMA
     Dosage: 610.0MG ONCE/SINGLE ADMINISTRATION
     Route: 042
     Dates: start: 20171206, end: 20171206
  27. FOSAVANCE [Concomitant]
     Active Substance: ALENDRONATE SODIUM\CHOLECALCIFEROL
     Indication: CARPAL TUNNEL SYNDROME
     Route: 048
  28. OXYBUTINE [Concomitant]
     Indication: CARPAL TUNNEL SYNDROME
     Route: 048
  29. BISEPTINE [Concomitant]
     Active Substance: BENZALKONIUM CHLORIDE\BENZYL ALCOHOL\CHLORHEXIDINE
     Indication: TOXIC SKIN ERUPTION
     Dosage: 1 APPLICATION, ONCE DAILY
     Route: 062
     Dates: start: 20171222
  30. BETNEVAL [Concomitant]
     Active Substance: BETAMETHASONE VALERATE
     Indication: TOXIC SKIN ERUPTION
     Dosage: 1 APPLICATION, AS NEEDED
     Route: 062
     Dates: start: 20171222, end: 20171228

REACTIONS (1)
  - Face oedema [Recovered/Resolved]

NARRATIVE: CASE EVENT DATE: 20180105
